FAERS Safety Report 8867552 (Version 1)
Quarter: 2012Q4

REPORT INFORMATION
  Report Type: 
  Country: US (occurrence: US)
  Receive Date: 20121025
  Receipt Date: 20121025
  Transmission Date: 20130627
  Serious: No
  Sender: FDA-Public Use
  Company Number: US-AMGEN-USASP2012017266

PATIENT
  Sex: Male
  Weight: 89.8 kg

DRUGS (8)
  1. ENBREL [Suspect]
     Indication: PRODUCT USED FOR UNKNOWN INDICATION
     Dosage: 50 mg, qwk
     Route: 058
  2. AVAPRO [Concomitant]
     Dosage: 75 mg, UNK
  3. LIPITOR [Concomitant]
     Dosage: 10 mg, UNK
  4. METHOTREXATE [Concomitant]
     Dosage: 2.5 mg, UNK
  5. FOLIC ACID [Concomitant]
     Dosage: 1 mg, UNK
  6. GLUCOSAMIN CHONDR [Concomitant]
     Dosage: UNK
  7. PREVACID [Concomitant]
     Dosage: 30 mg, UNK
  8. IBUPROFEN [Concomitant]
     Dosage: 200 mg, UNK

REACTIONS (1)
  - Injection site pruritus [Unknown]
